FAERS Safety Report 9645797 (Version 1)
Quarter: 2013Q4

REPORT INFORMATION
  Report Type: Spontaneous
  Country: US (occurrence: None)
  Receive Date: 20131024
  Receipt Date: 20131024
  Transmission Date: 20140711
  Serious: Yes (Disabling)
  Sender: FDA-Public Use
  Company Number: None

PATIENT
  Age: 85 Year
  Sex: Male
  Weight: 72.12 kg

DRUGS (4)
  1. AZITHROMYCIN 250 MG [Suspect]
     Route: 048
     Dates: start: 20130816, end: 20130913
  2. AMIODARONE HCL (PACERONE) 200MG [Concomitant]
  3. AMOXICILLIN 875/CLAV K 125MG [Concomitant]
  4. BUDESONIDE 80/FORMOTER 4.5MCG [Concomitant]

REACTIONS (6)
  - Dyspnoea [None]
  - Cardiac failure congestive [None]
  - Condition aggravated [None]
  - Deafness [None]
  - Tinnitus [None]
  - Visual acuity reduced [None]
